FAERS Safety Report 18588705 (Version 6)
Quarter: 2021Q2

REPORT INFORMATION
  Report Type: Report from Study
  Country: None (occurrence: US)
  Receive Date: 20201207
  Receipt Date: 20210616
  Transmission Date: 20210717
  Serious: Yes (Other)
  Sender: FDA-Public Use
  Company Number: US-ABBVIE-20K-163-3672149-00

PATIENT
  Sex: Male
  Weight: 72.64 kg

DRUGS (3)
  1. HUMIRA [Suspect]
     Active Substance: ADALIMUMAB
     Route: 058
     Dates: start: 2020
  2. HUMIRA [Suspect]
     Active Substance: ADALIMUMAB
     Route: 058
     Dates: start: 2021
  3. HUMIRA [Suspect]
     Active Substance: ADALIMUMAB
     Indication: CROHN^S DISEASE
     Route: 058
     Dates: start: 2019

REACTIONS (13)
  - Fistula [Recovering/Resolving]
  - Anorectal discomfort [Recovering/Resolving]
  - Nasopharyngitis [Unknown]
  - Contusion [Recovered/Resolved]
  - Gastrointestinal infection [Recovering/Resolving]
  - Wound secretion [Recovering/Resolving]
  - Diarrhoea [Unknown]
  - Intestinal perforation [Recovering/Resolving]
  - Proctalgia [Recovering/Resolving]
  - Sinusitis [Not Recovered/Not Resolved]
  - Localised infection [Recovering/Resolving]
  - Pain [Not Recovered/Not Resolved]
  - Sinusitis [Recovered/Resolved]

NARRATIVE: CASE EVENT DATE: 2019
